FAERS Safety Report 9286327 (Version 1)
Quarter: 2013Q2

REPORT INFORMATION
  Report Type: Spontaneous
  Country: US (occurrence: US)
  Receive Date: 20130513
  Receipt Date: 20130513
  Transmission Date: 20140414
  Serious: Yes (Hospitalization, Other)
  Sender: FDA-Public Use
  Company Number: US-ASTRAZENECA-2013SE31466

PATIENT
  Age: 73 Year
  Sex: Female
  Weight: 76.2 kg

DRUGS (16)
  1. NEXIUM [Suspect]
     Indication: GASTROOESOPHAGEAL REFLUX DISEASE
     Route: 048
  2. NEXIUM [Suspect]
     Indication: GASTROOESOPHAGEAL REFLUX DISEASE
     Route: 048
     Dates: start: 20130502
  3. PRILOSEC [Suspect]
     Indication: GASTROOESOPHAGEAL REFLUX DISEASE
     Route: 048
  4. FISH OIL [Concomitant]
     Route: 048
  5. CALTRATE WITH VITAMIN D [Concomitant]
     Indication: OSTEOPOROSIS
     Dosage: 600 BID
     Route: 048
  6. CALTRATE WITH VITAMIN D [Concomitant]
     Indication: OSTEOPOROSIS
     Dosage: DAILY
     Route: 048
  7. FOSAMAX [Concomitant]
     Indication: OSTEOPOROSIS
     Route: 048
     Dates: end: 2010
  8. BONIVA [Concomitant]
     Indication: OSTEOPOROSIS
     Route: 042
     Dates: start: 2010, end: 2010
  9. XANAX [Concomitant]
     Indication: ANXIETY
     Route: 048
  10. ZOLOFT [Concomitant]
     Route: 048
  11. TOPIRAMATE [Concomitant]
     Indication: HEADACHE
     Route: 048
  12. NORVASC [Concomitant]
     Indication: HYPERTENSION
     Route: 048
     Dates: start: 2012
  13. PLAVIX [Concomitant]
     Indication: TRANSIENT ISCHAEMIC ATTACK
     Route: 048
     Dates: start: 2008
  14. LIPITOR [Concomitant]
     Indication: BLOOD CHOLESTEROL
     Route: 048
     Dates: start: 2012
  15. ALLEGRA [Concomitant]
     Indication: MULTIPLE ALLERGIES
     Dosage: DAILY
     Route: 048
  16. CLARITIN [Concomitant]
     Indication: MULTIPLE ALLERGIES
     Dosage: DAILY
     Route: 048

REACTIONS (25)
  - Hernia [Unknown]
  - Transient ischaemic attack [Unknown]
  - Chest pain [Unknown]
  - Stress [Unknown]
  - Osteoporosis [Unknown]
  - Multiple allergies [Unknown]
  - Dysarthria [Unknown]
  - Blood creatinine increased [Unknown]
  - Blood potassium increased [Unknown]
  - Hypertension [Unknown]
  - Blood cholesterol increased [Unknown]
  - Throat irritation [Unknown]
  - Dysphagia [Unknown]
  - Weight increased [Unknown]
  - Hypoaesthesia [Unknown]
  - Hypoaesthesia oral [Unknown]
  - Burning sensation [Unknown]
  - Dyspepsia [Unknown]
  - Abdominal discomfort [Unknown]
  - Abdominal pain upper [Unknown]
  - Headache [Unknown]
  - Abdominal discomfort [Unknown]
  - Paraesthesia [Unknown]
  - Off label use [Unknown]
  - Drug effect decreased [Unknown]
